FAERS Safety Report 15211198 (Version 1)
Quarter: 2018Q3

REPORT INFORMATION
  Report Type: Spontaneous
  Country: US (occurrence: US)
  Receive Date: 20180729
  Receipt Date: 20180729
  Transmission Date: 20181010
  Serious: No
  Sender: FDA-Public Use
  Company Number: US-JNJFOC-20180709441

PATIENT
  Age: 67 Year
  Sex: Female

DRUGS (4)
  1. MOTRIN IB [Concomitant]
     Active Substance: IBUPROFEN
     Indication: FIBROMYALGIA
     Dosage: LAST 20 YEARS
     Route: 065
  2. CHILDRENS MOTRIN [Suspect]
     Active Substance: IBUPROFEN
     Indication: NEURALGIA
     Dosage: SINCE 1 AND HALF YEARS
     Route: 048
  3. MOTRIN IB [Concomitant]
     Active Substance: IBUPROFEN
     Indication: NEURALGIA
     Dosage: LAST 20 YEARS
     Route: 065
  4. CHILDRENS MOTRIN [Suspect]
     Active Substance: IBUPROFEN
     Indication: FIBROMYALGIA
     Dosage: SINCE 1 AND HALF YEARS
     Route: 048

REACTIONS (4)
  - Product use in unapproved indication [Unknown]
  - Throat irritation [Recovering/Resolving]
  - Drug administered to patient of inappropriate age [Unknown]
  - Product storage error [Unknown]

NARRATIVE: CASE EVENT DATE: 20180703
